FAERS Safety Report 8800951 (Version 1)
Quarter: 2012Q4

REPORT INFORMATION
  Report Type: 
  Country: US (occurrence: US)
  Receive Date: 20120921
  Receipt Date: 20120921
  Transmission Date: 20130627
  Serious: No
  Sender: FDA-Public Use
  Company Number: US-B.I. PHARMACEUTICALS,INC./RIDGEFIELD-2012-BP-22839BP

PATIENT
  Age: 89 Year
  Sex: Female
  Weight: 62 kg

DRUGS (2)
  1. SPIRIVA [Suspect]
     Indication: EMPHYSEMA
     Dosage: 18 mcg
     Route: 055
     Dates: start: 2006
  2. RESTASIS [Concomitant]
     Indication: MACULAR FIBROSIS
     Dates: start: 2007

REACTIONS (2)
  - Emphysema [Recovered/Resolved]
  - Macular fibrosis [Recovered/Resolved]
